FAERS Safety Report 20627924 (Version 1)
Quarter: 2022Q1

REPORT INFORMATION
  Report Type: Spontaneous
  Country: CN (occurrence: CN)
  Receive Date: 20220323
  Receipt Date: 20220323
  Transmission Date: 20220423
  Serious: Yes (Death, Other)
  Sender: FDA-Public Use
  Company Number: CN-BAYER-2022A040674

PATIENT
  Age: 69 Year
  Sex: Male

DRUGS (2)
  1. STIVARGA [Suspect]
     Active Substance: REGORAFENIB
     Indication: Rectal cancer metastatic
     Dosage: 160 MG, QD * 3W Q4W
     Route: 048
     Dates: start: 20191020
  2. STIVARGA [Suspect]
     Active Substance: REGORAFENIB
     Indication: Metastases to lung

REACTIONS (3)
  - Rectal cancer metastatic [Fatal]
  - Metastases to lung [Fatal]
  - Tumour cavitation [None]

NARRATIVE: CASE EVENT DATE: 20191219
